FAERS Safety Report 8969369 (Version 1)
Quarter: 2012Q4

REPORT INFORMATION
  Report Type: 
  Country: US (occurrence: US)
  Receive Date: 20121218
  Receipt Date: 20121218
  Transmission Date: 20130627
  Serious: Yes (Other)
  Sender: FDA-Public Use
  Company Number: US-BRISTOL-MYERS SQUIBB COMPANY-16619934

PATIENT
  Age: 52 Year
  Sex: Female

DRUGS (6)
  1. ABILIFY TABS [Suspect]
     Indication: OBSESSIVE-COMPULSIVE DISORDER
     Dosage: Dose reduced to 5mg
  2. ABILIFY TABS [Suspect]
     Indication: MAJOR DEPRESSION
     Dosage: Dose reduced to 5mg
  3. CYMBALTA [Suspect]
  4. AMBIEN [Concomitant]
  5. VALIUM [Concomitant]
  6. WELLBUTRIN [Concomitant]

REACTIONS (2)
  - Suicidal ideation [Recovered/Resolved]
  - Tremor [Not Recovered/Not Resolved]
